FAERS Safety Report 13399861 (Version 1)
Quarter: 2017Q2

REPORT INFORMATION
  Report Type: Spontaneous
  Country: US (occurrence: US)
  Receive Date: 20170404
  Receipt Date: 20170404
  Transmission Date: 20170830
  Serious: Yes (Disabling, Other)
  Sender: FDA-Public Use
  Company Number: US-009507513-1704USA000724

PATIENT
  Age: 53 Year
  Sex: Female
  Weight: 78.01 kg

DRUGS (1)
  1. KEYTRUDA [Suspect]
     Active Substance: PEMBROLIZUMAB
     Indication: METASTATIC MALIGNANT MELANOMA
     Dosage: UNK, Q3W
     Route: 042

REACTIONS (6)
  - Fatigue [Unknown]
  - Blindness [Unknown]
  - Dry mouth [Unknown]
  - Arthralgia [Unknown]
  - Blood thyroid stimulating hormone decreased [Unknown]
  - Lung operation [Unknown]
